FAERS Safety Report 5635995-1 (Version None)
Quarter: 2008Q1

REPORT INFORMATION
  Report Type: 
  Country: None (occurrence: None)
  Receive Date: 20080224
  Receipt Date: 20080214
  Transmission Date: 20080703
  Serious: Yes (Other)
  Sender: FDA-Public Use
  Company Number: PHHO2008TW02250

PATIENT
  Age: 79 Year
  Sex: Male
  Weight: 52 kg

DRUGS (1)
  1. ZOLEDRONIC ACID [Suspect]
     Indication: PROSTATE CANCER
     Dosage: 3.5 MG/MONTH
     Route: 042
     Dates: start: 20060920, end: 20071211

REACTIONS (4)
  - GINGIVAL SWELLING [None]
  - OSTEONECROSIS [None]
  - PERIODONTITIS [None]
  - TOOTHACHE [None]
